FAERS Safety Report 18875764 (Version 3)
Quarter: 2021Q2

REPORT INFORMATION
  Report Type: Report from Study
  Country: MX (occurrence: MX)
  Receive Date: 20210210
  Receipt Date: 20210506
  Transmission Date: 20210717
  Serious: Yes (Other)
  Sender: FDA-Public Use
  Company Number: NVSC2021MX026540

PATIENT
  Age: 39 Year
  Sex: Female
  Weight: 96 kg

DRUGS (3)
  1. TASIGNA [Suspect]
     Active Substance: NILOTINIB
     Indication: CHRONIC MYELOID LEUKAEMIA
     Dosage: 400 MG, BID
     Route: 048
  2. ELECTROLYTE [Concomitant]
     Active Substance: UNSPECIFIED INGREDIENT
     Indication: DEHYDRATION
     Dosage: 1 L, QD (FORMULATION: SERUM)
     Route: 065
     Dates: start: 202009, end: 202009
  3. TASIGNA [Suspect]
     Active Substance: NILOTINIB
     Dosage: 400 MG, Q12H
     Route: 065
     Dates: start: 2015

REACTIONS (15)
  - Joint swelling [Unknown]
  - Nausea [Not Recovered/Not Resolved]
  - Arthralgia [Recovering/Resolving]
  - Chest pain [Not Recovered/Not Resolved]
  - Headache [Not Recovered/Not Resolved]
  - Body temperature fluctuation [Unknown]
  - COVID-19 [Recovered/Resolved]
  - Dyspnoea [Not Recovered/Not Resolved]
  - Peripheral swelling [Unknown]
  - Ageusia [Unknown]
  - Feeling of despair [Unknown]
  - Parosmia [Recovered/Resolved]
  - Agitation [Not Recovered/Not Resolved]
  - Inflammation [Recovering/Resolving]
  - Vomiting [Not Recovered/Not Resolved]

NARRATIVE: CASE EVENT DATE: 202009
